FAERS Safety Report 6657292-8 (Version None)
Quarter: 2010Q1

REPORT INFORMATION
  Report Type: 
  Country: None (occurrence: None)
  Receive Date: 20100330
  Receipt Date: 20100325
  Transmission Date: 20100710
  Serious: Yes (Other)
  Sender: FDA-Public Use
  Company Number: GB-BAYER-201020120GPV

PATIENT
  Sex: Female
  Weight: 56 kg

DRUGS (1)
  1. SORAFENIB [Suspect]
     Indication: DRUG USE FOR UNKNOWN INDICATION
     Dates: start: 20091211, end: 20100312

REACTIONS (1)
  - HEPATIC FUNCTION ABNORMAL [None]
